FAERS Safety Report 6368415-2 (Version None)
Quarter: 2009Q3

REPORT INFORMATION
  Report Type: 
  Country: None (occurrence: None)
  Receive Date: 20090922
  Receipt Date: 20090914
  Transmission Date: 20100115
  Serious: Yes (Hospitalization)
  Sender: FDA-Public Use
  Company Number: US-ASTRAZENECA-2009SE12995

PATIENT
  Age: 76 Year
  Sex: Female

DRUGS (4)
  1. PULMICORT-100 [Suspect]
     Indication: ASTHMA
     Route: 055
     Dates: start: 20080801
  2. PROVANA [Concomitant]
  3. ALBUTEROL [Concomitant]
  4. SINGULAIR [Concomitant]

REACTIONS (1)
  - PNEUMONIA [None]
